FAERS Safety Report 5512771-1 (Version None)
Quarter: 2007Q4

REPORT INFORMATION
  Report Type: 
  Country: None (occurrence: None)
  Receive Date: 20071108
  Receipt Date: 20071017
  Transmission Date: 20080405
  Serious: Yes (Other)
  Sender: FDA-Public Use
  Company Number: 2007SP019081

PATIENT
  Age: 18 Year
  Sex: Male
  Weight: 65.7716 kg

DRUGS (3)
  1. CORICIDIN HBP COUGH + COLD [Suspect]
     Indication: DEPENDENCE
     Dosage: 16 DF; ; PO
     Route: 048
     Dates: start: 20040201
  2. CORICIDIN HBP COUGH + COLD [Suspect]
     Indication: INTENTIONAL DRUG MISUSE
     Dosage: 16 DF; ; PO
     Route: 048
     Dates: start: 20040201
  3. DRAMAMINE [Concomitant]

REACTIONS (3)
  - DRUG DEPENDENCE [None]
  - INTENTIONAL DRUG MISUSE [None]
  - OVERDOSE [None]
